FAERS Safety Report 6730023-9 (Version None)
Quarter: 2010Q2

REPORT INFORMATION
  Report Type: 
  Country: None (occurrence: None)
  Receive Date: 20100518
  Receipt Date: 20100506
  Transmission Date: 20101027
  Serious: Yes (Death, Hospitalization, Other)
  Sender: FDA-Public Use
  Company Number: US-JNJFOC-20051003160

PATIENT
  Age: 15 Year
  Sex: Male
  Weight: 38.3 kg

DRUGS (28)
  1. REMICADE [Suspect]
     Indication: CROHN'S DISEASE
     Route: 042
  2. REMICADE [Suspect]
     Route: 042
  3. REMICADE [Suspect]
     Route: 042
  4. REMICADE [Suspect]
     Route: 042
  5. REMICADE [Suspect]
     Route: 042
  6. REMICADE [Suspect]
     Route: 042
  7. REMICADE [Suspect]
     Route: 042
  8. REMICADE [Suspect]
     Dosage: PATIENT RECEIVED 13 TREATMENTS.
     Route: 042
  9. REMICADE [Suspect]
     Dosage: PATIENT RECEIVED 13 TREATMENTS.
     Route: 042
  10. REMICADE [Suspect]
     Route: 042
  11. REMICADE [Suspect]
     Route: 042
  12. REMICADE [Suspect]
     Route: 042
  13. REMICADE [Suspect]
     Route: 042
  14. MERCAPTOPURINE [Concomitant]
  15. PREDNISONE TAB [Concomitant]
     Dosage: START NOV-2001 AT 20MG OD, DOSES FROM 2.5MG QOD TO 5MG OD (WEANED OFF FOR SHORT PERIODS OF TIME)
  16. IMURAN [Concomitant]
  17. IMURAN [Concomitant]
  18. IMURAN [Concomitant]
  19. IMURAN [Concomitant]
  20. IMURAN [Concomitant]
  21. IMURAN [Concomitant]
  22. IMURAN [Concomitant]
  23. ZANTAC [Concomitant]
  24. FEOSOL [Concomitant]
  25. ASACOL [Concomitant]
     Dosage: 2 TABS BID
  26. CALCIUM + VITAMIN D [Concomitant]
     Dosage: 1 TAB OD
  27. HUMAN GROWTH HORMONE [Concomitant]
     Dosage: DAILY INJECTIONS
  28. FORVIA [Concomitant]

REACTIONS (4)
  - DISSEMINATED INTRAVASCULAR COAGULATION [None]
  - HEPATOSPLENIC T-CELL LYMPHOMA [None]
  - LACTIC ACIDOSIS [None]
  - RESPIRATORY FAILURE [None]
